FAERS Safety Report 25037423 (Version 1)
Quarter: 2025Q1

REPORT INFORMATION
  Report Type: Report from Study
  Country: ZA (occurrence: ZA)
  Receive Date: 20250304
  Receipt Date: 20250304
  Transmission Date: 20250408
  Serious: Yes (Other)
  Sender: TEVA
  Company Number: ZA-TEVA-VS-3304867

PATIENT
  Age: 49 Year
  Sex: Female

DRUGS (3)
  1. FINGOLIMOD HYDROCHLORIDE [Suspect]
     Active Substance: FINGOLIMOD HYDROCHLORIDE
     Indication: Multiple sclerosis
     Route: 048
     Dates: start: 20241030
  2. ENALAPRIL [Concomitant]
     Active Substance: ENALAPRIL
     Indication: Hypertension
     Route: 048
     Dates: start: 202411
  3. METFORMIN [Concomitant]
     Active Substance: METFORMIN HYDROCHLORIDE
     Indication: Type 2 diabetes mellitus
     Route: 048
     Dates: start: 202407

REACTIONS (16)
  - Multiple sclerosis relapse [Recovering/Resolving]
  - Peripheral swelling [Unknown]
  - Head discomfort [Unknown]
  - Chills [Unknown]
  - Ear discomfort [Not Recovered/Not Resolved]
  - Myalgia [Unknown]
  - Dyspnoea [Unknown]
  - Chest pain [Unknown]
  - Lymphadenopathy [Unknown]
  - Fatigue [Unknown]
  - Gait disturbance [Not Recovered/Not Resolved]
  - Burning sensation [Recovered/Resolved]
  - Pain [Unknown]
  - Pain in extremity [Recovered/Resolved]
  - Malaise [Unknown]
  - Muscular weakness [Unknown]

NARRATIVE: CASE EVENT DATE: 20241001
